FAERS Safety Report 7711720-5 (Version None)
Quarter: 2011Q3

REPORT INFORMATION
  Report Type: 
  Country: None (occurrence: None)
  Receive Date: 20110823
  Receipt Date: 20110817
  Transmission Date: 20111222
  Serious: Yes (Hospitalization)
  Sender: FDA-Public Use
  Company Number: CIP11002038

PATIENT
  Age: 84 Year
  Sex: Male

DRUGS (4)
  1. ACTONEL [Suspect]
     Indication: OSTEOPOROSIS
     Dosage: 150 MG, ONCE A MONTH, ORAL
     Route: 048
     Dates: start: 20110701
  2. CALCIUM CARBONATE [Concomitant]
  3. ERGOCALCIFEROL [Concomitant]
  4. CHARCOAL ACTIVATED (CHARCOAL, ACTIVATED) [Concomitant]

REACTIONS (1)
  - ATRIOVENTRICULAR BLOCK [None]
